FAERS Safety Report 15262850 (Version 1)
Quarter: 2018Q3

REPORT INFORMATION
  Report Type: Spontaneous
  Country: DE (occurrence: DE)
  Receive Date: 20180810
  Receipt Date: 20180810
  Transmission Date: 20181010
  Serious: Yes (Hospitalization, Other)
  Sender: FDA-Public Use
  Company Number: DE-SUN PHARMACEUTICAL INDUSTRIES LTD-2018RR-181004

PATIENT
  Age: 47 Year
  Sex: Female

DRUGS (1)
  1. BACLOFEN. [Suspect]
     Active Substance: BACLOFEN
     Indication: ALCOHOLISM
     Dosage: INCREASING DOSE OVER 1 WEEK, AT LEAST 8X25 MG 2 DAYS BEFORE HER DISCOVERY
     Route: 065

REACTIONS (10)
  - Rhabdomyolysis [Recovering/Resolving]
  - Multiple organ dysfunction syndrome [Recovering/Resolving]
  - Stress cardiomyopathy [Recovering/Resolving]
  - Device related sepsis [Recovering/Resolving]
  - Fall [Recovering/Resolving]
  - Candida infection [Recovering/Resolving]
  - Pulmonary oedema [Recovering/Resolving]
  - Overdose [Unknown]
  - Delirium [Recovering/Resolving]
  - Off label use [Unknown]
